FAERS Safety Report 13084720 (Version 5)
Quarter: 2017Q2

REPORT INFORMATION
  Report Type: Report from Study
  Country: US (occurrence: US)
  Receive Date: 20170104
  Receipt Date: 20170504
  Transmission Date: 20170830
  Serious: Yes (Other)
  Sender: FDA-Public Use
  Company Number: US-009507513-1612USA009452

PATIENT
  Age: 65 Year
  Sex: Male

DRUGS (5)
  1. METOPROLOL. [Concomitant]
     Active Substance: METOPROLOL
     Dosage: UNK
  2. ATORVASTATIN [Concomitant]
     Active Substance: ATORVASTATIN
     Dosage: UNK
  3. ASPIRIN. [Concomitant]
     Active Substance: ASPIRIN
     Dosage: UNK
     Route: 048
  4. CILOSTAZOL. [Concomitant]
     Active Substance: CILOSTAZOL
     Dosage: UNK
  5. PEMBROLIZUMAB. [Suspect]
     Active Substance: PEMBROLIZUMAB
     Indication: NON-SMALL CELL LUNG CANCER
     Dosage: UNK/ EVERY 3 WEEKS
     Route: 042
     Dates: start: 20161201

REACTIONS (8)
  - Dermatitis contact [Unknown]
  - Dyspepsia [Recovered/Resolved]
  - Muscle spasms [Unknown]
  - Decreased appetite [Recovering/Resolving]
  - Fatigue [Recovered/Resolved]
  - Cardiac disorder [Unknown]
  - Oesophageal stenosis [Recovering/Resolving]
  - Rash pruritic [Recovered/Resolved]

NARRATIVE: CASE EVENT DATE: 20161204
